FAERS Safety Report 5842862-7 (Version None)
Quarter: 2008Q3

REPORT INFORMATION
  Report Type: 
  Country: None (occurrence: None)
  Receive Date: 20080813
  Receipt Date: 20080806
  Transmission Date: 20090109
  Serious: Yes (Death, Life-Threatening, Other)
  Sender: FDA-Public Use
  Company Number: CA-CELGENEUS-028-20785-08080319

PATIENT
  Sex: Male

DRUGS (1)
  1. THALOMID [Suspect]
     Indication: MULTIPLE MYELOMA
     Route: 048

REACTIONS (3)
  - HAEMATEMESIS [None]
  - INFECTION [None]
  - MULTIPLE MYELOMA [None]
